FAERS Safety Report 17326545 (Version 1)
Quarter: 2020Q1

REPORT INFORMATION
  Report Type: Spontaneous
  Country: US (occurrence: US)
  Receive Date: 20200127
  Receipt Date: 20200127
  Transmission Date: 20200409
  Serious: Yes (Other)
  Sender: FDA-Public Use
  Company Number: US-PCCINC-2019-PEL-000092

PATIENT

DRUGS (3)
  1. GABLOFEN [Suspect]
     Active Substance: BACLOFEN
     Dosage: 150 MICROGRAM, QD
     Route: 037
     Dates: start: 20190314
  2. GABLOFEN [Suspect]
     Active Substance: BACLOFEN
     Indication: MUSCLE SPASTICITY
     Dosage: 200 MICROGRAM, QD
     Route: 037
  3. GABLOFEN [Suspect]
     Active Substance: BACLOFEN
     Dosage: 100 MICROGRAM, QD
     Route: 037
     Dates: start: 20190318

REACTIONS (4)
  - Muscular weakness [Unknown]
  - Device dislocation [Recovered/Resolved]
  - Fatigue [Unknown]
  - Extra dose administered [Unknown]
